FAERS Safety Report 4889872-4 (Version None)
Quarter: 2006Q1

REPORT INFORMATION
  Report Type: 
  Country: None (occurrence: None)
  Receive Date: 20060120
  Receipt Date: 20060111
  Transmission Date: 20060701
  Serious: Yes (Hospitalization, Other)
  Sender: FDA-Public Use
  Company Number: HQWYE330513JAN06

PATIENT
  Age: 66 Year
  Sex: Female
  Weight: 47.7 kg

DRUGS (15)
  1. RAPAMUNE [Suspect]
     Indication: PROPHYLAXIS AGAINST TRANSPLANT REJECTION
     Dosage: 2  MG 1X PER 1 DAY, ORAL; 2 MG ONCE DAILY - COMMERCIAL SUPPLY, ORAL
     Route: 048
     Dates: start: 20050310, end: 20050101
  2. RAPAMUNE [Suspect]
     Indication: PROPHYLAXIS AGAINST TRANSPLANT REJECTION
     Dosage: 2  MG 1X PER 1 DAY, ORAL; 2 MG ONCE DAILY - COMMERCIAL SUPPLY, ORAL
     Route: 048
     Dates: start: 20050101
  3. PROGRAF [Suspect]
     Indication: PROPHYLAXIS AGAINST TRANSPLANT REJECTION
     Dosage: 1 MG 2X PER 1 DAY, ORAL; 1 MG 1X [ER 1 DAY, ORAL; 2 MG 2X PER 1 DAY, ORAL
     Route: 048
     Dates: start: 20050930, end: 20050101
  4. PROGRAF [Suspect]
     Indication: PROPHYLAXIS AGAINST TRANSPLANT REJECTION
     Dosage: 1 MG 2X PER 1 DAY, ORAL; 1 MG 1X [ER 1 DAY, ORAL; 2 MG 2X PER 1 DAY, ORAL
     Route: 048
     Dates: start: 20050101
  5. PREDNISONE [Concomitant]
  6. ZENAPAX [Concomitant]
  7. LIPITOR [Concomitant]
  8. LASIX [Concomitant]
  9. PEPCID [Concomitant]
  10. ACTONEL [Concomitant]
  11. VASOTEC [Concomitant]
  12. MULTIVITAMINS, PLAIN (MULTIVITAMINS, PLAIN) [Concomitant]
  13. PROTONIX [Concomitant]
  14. NORVASC [Concomitant]
  15. COREG [Concomitant]

REACTIONS (1)
  - KIDNEY TRANSPLANT REJECTION [None]
